FAERS Safety Report 13603917 (Version 3)
Quarter: 2017Q4

REPORT INFORMATION
  Report Type: Report from Study
  Country: CO (occurrence: CO)
  Receive Date: 20170602
  Receipt Date: 20171025
  Transmission Date: 20180320
  Serious: Yes (Hospitalization, Other)
  Sender: FDA-Public Use
  Company Number: CO-BRISTOL-MYERS SQUIBB COMPANY-BMS-2017-046584

PATIENT
  Age: 54 Year
  Sex: Male

DRUGS (8)
  1. LEFLUNOMIDE. [Concomitant]
     Active Substance: LEFLUNOMIDE
     Indication: PRODUCT USED FOR UNKNOWN INDICATION
     Route: 065
  2. FOLIC ACID. [Concomitant]
     Active Substance: FOLIC ACID
     Indication: PRODUCT USED FOR UNKNOWN INDICATION
     Route: 065
  3. METHOTREXATE. [Concomitant]
     Active Substance: METHOTREXATE
     Indication: PRODUCT USED FOR UNKNOWN INDICATION
     Route: 065
  4. CALCITRIOL. [Concomitant]
     Active Substance: CALCITRIOL
     Indication: PRODUCT USED FOR UNKNOWN INDICATION
     Route: 065
  5. ABATACEPT [Suspect]
     Active Substance: ABATACEPT
     Indication: PRODUCT USED FOR UNKNOWN INDICATION
     Dosage: 500 MG, QMO
     Route: 042
     Dates: start: 20160110
  6. PREDNISOLONE. [Concomitant]
     Active Substance: PREDNISOLONE
     Indication: PRODUCT USED FOR UNKNOWN INDICATION
     Route: 065
  7. DEFLAZACORT [Concomitant]
     Active Substance: DEFLAZACORT
     Indication: PRODUCT USED FOR UNKNOWN INDICATION
     Route: 065
  8. ABATACEPT [Suspect]
     Active Substance: ABATACEPT
     Indication: RHEUMATOID ARTHRITIS
     Dosage: 500 MG, Q4WK
     Route: 042
     Dates: start: 20151020

REACTIONS (5)
  - Deafness [Unknown]
  - Rheumatoid arthritis [Recovering/Resolving]
  - Middle ear effusion [Recovered/Resolved]
  - Headache [Unknown]
  - Device related infection [Recovering/Resolving]

NARRATIVE: CASE EVENT DATE: 20170517
